FAERS Safety Report 5934037-8 (Version None)
Quarter: 2008Q4

REPORT INFORMATION
  Report Type: 
  Country: None (occurrence: None)
  Receive Date: 20081024
  Receipt Date: 20081015
  Transmission Date: 20090506
  Serious: Yes (Hospitalization)
  Sender: FDA-Public Use
  Company Number: GXKR2008US08707

PATIENT
  Age: 30 Year
  Sex: Female

DRUGS (10)
  1. CYCLOSPORINE [Suspect]
  2. MYCOPHENOLATE MOFETIL [Suspect]
  3. PREDNISONE [Suspect]
  4. INSULIN (INSULIN) UNKNOWN [Concomitant]
  5. FLUCONAZOLE [Concomitant]
  6. GANCICLOVIR [Concomitant]
  7. SULFAMETHOXAZOLE W/TRIMETHOPRIM (SULFAMETHOXAZOLE, TRIMETHOPRIM) UNKNO [Concomitant]
  8. ATENOLOL (ATENOLOL) UNKNOWN [Concomitant]
  9. CLONIDINE (CLONIDINE) UNKNOWN [Concomitant]
  10. ENZYMES (NO INGREDIENTS/SUBSTANCES) UNKNOWN [Concomitant]

REACTIONS (2)
  - BILE DUCT CANCER [None]
  - BILE DUCT OBSTRUCTION [None]
